FAERS Safety Report 7560054-0 (Version None)
Quarter: 2011Q2

REPORT INFORMATION
  Report Type: 
  Country: None (occurrence: None)
  Receive Date: 20110621
  Receipt Date: 20110614
  Transmission Date: 20111010
  Serious: Yes (Other)
  Sender: FDA-Public Use
  Company Number: PHHO2011US09522

PATIENT
  Sex: Female
  Weight: 47.4 kg

DRUGS (1)
  1. ILARIS [Suspect]
     Indication: DRUG LEVEL
     Dosage: 150 MG/ML, ONCE/SINGLE
     Route: 058
     Dates: start: 20110122, end: 20110122

REACTIONS (1)
  - NEUTROPENIA [None]
